FAERS Safety Report 9425939 (Version 1)
Quarter: 2013Q3

REPORT INFORMATION
  Report Type: Report from Study
  Country: BR (occurrence: BR)
  Receive Date: 20130729
  Receipt Date: 20130729
  Transmission Date: 20140515
  Serious: Yes (Other)
  Sender: FDA-Public Use
  Company Number: BR-US-EMD SERONO, INC.-7225637

PATIENT
  Sex: Female

DRUGS (3)
  1. REBIF [Suspect]
     Route: 065
     Dates: start: 20050704
  2. BACLOFEN [Concomitant]
     Route: 065
  3. TYLENOL                            /00020001/ [Concomitant]
     Route: 065

REACTIONS (2)
  - Abortion [Unknown]
  - Exposure via father [Recovered/Resolved]
